FAERS Safety Report 20091672 (Version 1)
Quarter: 2021Q4

REPORT INFORMATION
  Report Type: Spontaneous
  Country: RO (occurrence: RO)
  Receive Date: 20211119
  Receipt Date: 20211119
  Transmission Date: 20220303
  Serious: Yes (Hospitalization)
  Sender: FDA-Public Use
  Company Number: RO-GUERBET-RO-20210002

PATIENT
  Age: 70 Year
  Sex: Male

DRUGS (2)
  1. OPTIRAY 350 [Suspect]
     Active Substance: IOVERSOL
     Indication: Angiocardiogram
     Route: 065
  2. OPTIRAY 350 [Suspect]
     Active Substance: IOVERSOL
     Indication: Computerised tomogram head
     Route: 065

REACTIONS (2)
  - Contrast encephalopathy [Recovered/Resolved]
  - Condition aggravated [Recovered/Resolved]
